FAERS Safety Report 7711762-X (Version None)
Quarter: 2011Q3

REPORT INFORMATION
  Report Type: 
  Country: None (occurrence: None)
  Receive Date: 20110823
  Receipt Date: 20110809
  Transmission Date: 20111222
  Serious: Yes (Hospitalization)
  Sender: FDA-Public Use
  Company Number: 2011P10082314

PATIENT
  Age: 38 Year
  Sex: Female

DRUGS (2)
  1. LONG LIST OF UNSPECIFIED MEDICATIONS [Concomitant]
  2. FENTANYL CITRATE [Suspect]
     Indication: PAIN
     Dosage: Q72HR;TDER Q48HR;TDER 2 PATCHES;Q24HR;TDER
     Route: 062
     Dates: start: 20100101

REACTIONS (3)
  - APPLICATION SITE PERSPIRATION [None]
  - INADEQUATE ANALGESIA [None]
  - PRODUCT ADHESION ISSUE [None]
